FAERS Safety Report 10190306 (Version 1)
Quarter: 2014Q2

REPORT INFORMATION
  Report Type: Spontaneous
  Country: US (occurrence: None)
  Receive Date: 20140521
  Receipt Date: 20140521
  Transmission Date: 20141212
  Serious: No
  Sender: FDA-Public Use
  Company Number: None

PATIENT
  Age: 53 Year
  Sex: Female
  Weight: 54.6 kg

DRUGS (1)
  1. PACLITAXEL(TAXOL) [Suspect]
     Dates: end: 20140505

REACTIONS (4)
  - Small intestinal obstruction [None]
  - Lymphocyte count decreased [None]
  - Neutrophil count decreased [None]
  - Pain [None]
